FAERS Safety Report 18311349 (Version 2)
Quarter: 2020Q4

REPORT INFORMATION
  Report Type: Spontaneous
  Country: US (occurrence: US)
  Receive Date: 20200925
  Receipt Date: 20201124
  Transmission Date: 20210113
  Serious: Yes (Hospitalization)
  Sender: FDA-Public Use
  Company Number: NVSC2020US256849

PATIENT
  Sex: Male
  Weight: 7.9 kg

DRUGS (1)
  1. ZOLGENSMA [Suspect]
     Active Substance: ONASEMNOGENE ABEPARVOVEC-XIOI
     Indication: SPINAL MUSCULAR ATROPHY
     Dosage: UNK (XI)
     Route: 042
     Dates: start: 20200930, end: 20200930

REACTIONS (4)
  - Tachypnoea [Unknown]
  - Atelectasis [Unknown]
  - White blood cell disorder [Unknown]
  - Pyrexia [Unknown]
